FAERS Safety Report 7361359-9 (Version None)
Quarter: 2011Q1

REPORT INFORMATION
  Report Type: 
  Country: None (occurrence: None)
  Receive Date: 20110318
  Receipt Date: 20110308
  Transmission Date: 20110831
  Serious: Yes (Hospitalization)
  Sender: FDA-Public Use
  Company Number: B0706532A

PATIENT
  Sex: Male
  Weight: 62 kg

DRUGS (3)
  1. LAPATINIB [Suspect]
     Dosage: 1250MG PER DAY
     Route: 048
     Dates: start: 20110208, end: 20110220
  2. LORNOXICAM [Concomitant]
     Indication: BONE PAIN
     Dosage: 8MG PER DAY
     Dates: start: 20110215, end: 20110220
  3. DEXAMETHASONE [Suspect]
     Dosage: 4MG PER DAY
     Dates: start: 20110215, end: 20110220

REACTIONS (3)
  - PERITONEAL INFECTION [None]
  - JEJUNAL PERFORATION [None]
  - ABDOMINAL PAIN [None]
